FAERS Safety Report 10902563 (Version 1)
Quarter: 2015Q1

REPORT INFORMATION
  Report Type: Spontaneous
  Country: IT (occurrence: IT)
  Receive Date: 20150310
  Receipt Date: 20150310
  Transmission Date: 20150721
  Serious: Yes (Hospitalization)
  Sender: FDA-Public Use
  Company Number: IT-ACTAVIS-2015-04501

PATIENT
  Age: 49 Year
  Sex: Female

DRUGS (6)
  1. GABAPENTIN. [Suspect]
     Active Substance: GABAPENTIN
     Indication: FIBROMYALGIA
     Dosage: 1200 MG, TOTAL
     Route: 048
     Dates: start: 20140818, end: 20140818
  2. VECLAM [Suspect]
     Active Substance: CLARITHROMYCIN
     Indication: PRODUCT USED FOR UNKNOWN INDICATION
     Dosage: 5500 MG, TOTAL
     Route: 048
     Dates: start: 20140818, end: 20140818
  3. CYMBALTA [Suspect]
     Active Substance: DULOXETINE HYDROCHLORIDE
     Indication: PSYCHOTIC DISORDER
     Dosage: 840 MG, TOTAL
     Route: 048
     Dates: start: 20140818, end: 20140818
  4. MOGADON [Suspect]
     Active Substance: NITRAZEPAM
     Indication: PSYCHOTIC DISORDER
     Dosage: 35 MG, TOTAL
     Route: 048
     Dates: start: 20140818, end: 20140818
  5. FELISON [Suspect]
     Active Substance: FLURAZEPAM MONOHYDROCHLORIDE
     Indication: PSYCHOTIC DISORDER
     Dosage: 35 MG, TOTAL
     Route: 048
     Dates: start: 20140818, end: 20140818
  6. LAROXYL [Suspect]
     Active Substance: AMITRIPTYLINE
     Indication: PSYCHOTIC DISORDER
     Dosage: 800 MG, TOTAL
     Route: 048
     Dates: start: 20140818, end: 20140818

REACTIONS (2)
  - Drug abuse [Recovering/Resolving]
  - Loss of consciousness [Recovering/Resolving]

NARRATIVE: CASE EVENT DATE: 20140818
